FAERS Safety Report 12852872 (Version 6)
Quarter: 2017Q4

REPORT INFORMATION
  Report Type: Report from Study
  Country: DE (occurrence: DE)
  Receive Date: 20161017
  Receipt Date: 20171013
  Transmission Date: 20180320
  Serious: Yes (Death, Other)
  Sender: FDA-Public Use
  Company Number: DE-CELGENEUS-DEU-2016100877

PATIENT

DRUGS (2)
  1. REVLIMID [Suspect]
     Active Substance: LENALIDOMIDE
     Indication: PLASMA CELL MYELOMA
     Route: 048
  2. DEXAMETHASONE. [Suspect]
     Active Substance: DEXAMETHASONE
     Indication: PLASMA CELL MYELOMA
     Route: 065

REACTIONS (12)
  - Febrile neutropenia [Unknown]
  - Plasma cell myeloma [Fatal]
  - Infection [Fatal]
  - Thrombocytopenia [Unknown]
  - Pneumonia [Unknown]
  - Neutropenia [Unknown]
  - Polyneuropathy [Unknown]
  - Death [Fatal]
  - Cardiac arrest [Unknown]
  - Herpes zoster [Unknown]
  - Myocardial infarction [Unknown]
  - Embolism venous [Unknown]
